FAERS Safety Report 9737043 (Version 2)
Quarter: 2013Q4

REPORT INFORMATION
  Report Type: Report from Study
  Country: DE (occurrence: DE)
  Receive Date: 20131206
  Receipt Date: 20131227
  Transmission Date: 20140711
  Serious: Yes (Other)
  Sender: FDA-Public Use
  Company Number: DE-SA-2013SA125501

PATIENT
  Age: 72 Year
  Sex: Male
  Weight: 73 kg

DRUGS (10)
  1. MULTAQ [Suspect]
     Indication: ATRIAL FIBRILLATION
     Route: 065
     Dates: end: 201304
  2. METOPROLOL [Suspect]
     Indication: PRODUCT USED FOR UNKNOWN INDICATION
     Route: 065
  3. VITAMIN K [Concomitant]
     Indication: ANTICOAGULANT THERAPY
  4. RAMIPRIL [Concomitant]
  5. METOPROLOL [Concomitant]
  6. PHENPROCOUMON [Concomitant]
  7. TRAVATAN [Concomitant]
  8. L-THYROXIN [Concomitant]
  9. OMEPRAZOLE [Concomitant]
  10. JUNIK [Concomitant]

REACTIONS (1)
  - Bradyarrhythmia [Unknown]
